FAERS Safety Report 8549976 (Version 3)
Quarter: 2012Q4

REPORT INFORMATION
  Report Type: 
  Country: US (occurrence: US)
  Receive Date: 20120507
  Receipt Date: 20120906
  Transmission Date: 20130627
  Serious: Yes (Other)
  Sender: FDA-Public Use
  Company Number: US-JNJFOC-20120414090

PATIENT
  Sex: Male
  Weight: 83.92 kg

DRUGS (7)
  1. HALDOL [Suspect]
     Indication: PSYCHOTIC DISORDER
     Route: 048
  2. ABILIFY [Concomitant]
     Indication: PSYCHOTIC DISORDER
     Route: 048
  3. LISINOPRIL [Concomitant]
     Indication: BLOOD PRESSURE
     Route: 048
  4. BRETHINE [Concomitant]
     Indication: ASTHMA
     Dosage: as needed
     Route: 048
  5. EPHEDRINE [Concomitant]
     Indication: SOMNOLENCE
     Route: 065
  6. CAFFEINE [Concomitant]
     Indication: SOMNOLENCE
     Route: 065
  7. ANTI-PSYCHOTICS [Concomitant]
     Route: 065

REACTIONS (7)
  - Extrapyramidal disorder [Recovered/Resolved]
  - Bruxism [Recovered/Resolved]
  - Visual impairment [Recovered/Resolved]
  - Hearing impaired [Recovered/Resolved]
  - Adverse drug reaction [Recovered/Resolved]
  - Tooth fracture [Recovered/Resolved]
  - Balance disorder [Recovering/Resolving]
